FAERS Safety Report 10129326 (Version 1)
Quarter: 2014Q2

REPORT INFORMATION
  Report Type: Report from Study
  Country: US (occurrence: US)
  Receive Date: 20140428
  Receipt Date: 20140428
  Transmission Date: 20141212
  Serious: No
  Sender: FDA-Public Use
  Company Number: US-ABBVIE-14P-163-1206311-00

PATIENT
  Age: 38 Year
  Sex: Male
  Weight: 170.25 kg

DRUGS (2)
  1. ANDROGEL [Suspect]
     Indication: BLOOD TESTOSTERONE DECREASED
     Dosage: 2 PUMPS
     Route: 061
     Dates: start: 201312, end: 201402
  2. ANDROGEL [Suspect]
     Dosage: 4 PUMPS
     Route: 061
     Dates: start: 201402

REACTIONS (1)
  - Insomnia [Not Recovered/Not Resolved]
